FAERS Safety Report 5396785-0 (Version None)
Quarter: 2007Q3

REPORT INFORMATION
  Report Type: 
  Country: None (occurrence: None)
  Receive Date: 20070725
  Receipt Date: 20070717
  Transmission Date: 20080115
  Serious: Yes (Hospitalization, Other)
  Sender: FDA-Public Use
  Company Number: US-ROCHE-504343

PATIENT
  Age: 85 Year
  Sex: Female

DRUGS (1)
  1. BONIVA [Suspect]
     Indication: OSTEOPOROSIS
     Route: 042
     Dates: start: 20070501, end: 20070501

REACTIONS (9)
  - ASTHENIA [None]
  - CARDIAC ARREST [None]
  - CARDIAC DISORDER [None]
  - DIARRHOEA [None]
  - DYSPHAGIA [None]
  - LOSS OF CONSCIOUSNESS [None]
  - MASTICATION DISORDER [None]
  - NAUSEA [None]
  - RENAL DISORDER [None]
